FAERS Safety Report 13850414 (Version 1)
Quarter: 2017Q3

REPORT INFORMATION
  Report Type: Spontaneous
  Country: ES (occurrence: ES)
  Receive Date: 20170809
  Receipt Date: 20170809
  Transmission Date: 20171127
  Serious: Yes (Hospitalization)
  Sender: FDA-Public Use
  Company Number: ES-PFM-2017-06708

PATIENT

DRUGS (3)
  1. NAVELBINE [Suspect]
     Active Substance: VINORELBINE TARTRATE
     Indication: LUNG ADENOCARCINOMA
     Dosage: UNK
     Route: 048
     Dates: start: 20170208
  2. OMEPRAZOL [Concomitant]
     Active Substance: OMEPRAZOLE
     Indication: PRODUCT USED FOR UNKNOWN INDICATION
     Dosage: UNK
     Route: 048
  3. RAMIPRIL/HIDROCLOROTIAZIDA TECNIGEN [Interacting]
     Active Substance: HYDROCHLOROTHIAZIDE\RAMIPRIL
     Indication: HYPERTENSION
     Route: 048
     Dates: start: 20110502, end: 20170310

REACTIONS (4)
  - Drug interaction [Unknown]
  - Inappropriate antidiuretic hormone secretion [Recovered/Resolved]
  - Disorientation [Recovered/Resolved]
  - Disease progression [None]

NARRATIVE: CASE EVENT DATE: 20170310
